FAERS Safety Report 11291103 (Version 2)
Quarter: 2015Q3

REPORT INFORMATION
  Report Type: Report from Study
  Country: US (occurrence: US)
  Receive Date: 20150722
  Receipt Date: 20150904
  Transmission Date: 20151125
  Serious: Yes (Death)
  Sender: FDA-Public Use
  Company Number: PHEH2015US013784

PATIENT
  Sex: Male

DRUGS (1)
  1. TOBI PODHALER [Suspect]
     Active Substance: TOBRAMYCIN
     Indication: PNEUMONIA PSEUDOMONAL
     Dosage: 4 DF, BID (28 DAYS ON AND 28 DAYS OFF)
     Route: 055
     Dates: start: 20141006

REACTIONS (2)
  - Non-Hodgkin^s lymphoma [Fatal]
  - Complications of transplant surgery [Fatal]
